FAERS Safety Report 8564071 (Version 3)
Quarter: 2013Q4

REPORT INFORMATION
  Report Type: Spontaneous
  Country: US (occurrence: US)
  Receive Date: 20120516
  Receipt Date: 20131011
  Transmission Date: 20140711
  Serious: No
  Sender: FDA-Public Use
  Company Number: US-PFIZER INC-2012114167

PATIENT
  Age: 67 Year
  Sex: Female

DRUGS (7)
  1. BENZYLPENICILLIN POTASSIUM [Suspect]
     Dosage: UNK
  2. PHENYTOIN [Suspect]
     Dosage: UNK
  3. BACITRACIN [Suspect]
     Dosage: UNK
  4. POLYMYXIN B SULFATE [Suspect]
     Dosage: UNK
  5. CODEINE [Suspect]
     Dosage: UNK
  6. POVIDONE-IODINE [Suspect]
     Dosage: UNK
  7. ASPIRIN [Suspect]
     Dosage: UNK

REACTIONS (1)
  - Drug hypersensitivity [Unknown]
